FAERS Safety Report 24617828 (Version 2)
Quarter: 2025Q3

REPORT INFORMATION
  Report Type: Spontaneous
  Country: CA (occurrence: CA)
  Receive Date: 20241114
  Receipt Date: 20250707
  Transmission Date: 20251020
  Serious: Yes (Hospitalization)
  Sender: ACCORD
  Company Number: None

PATIENT
  Age: 46 Year
  Sex: Male

DRUGS (6)
  1. ROSUVASTATIN CALCIUM [Suspect]
     Active Substance: ROSUVASTATIN CALCIUM
     Indication: Dyslipidaemia
  2. LITHIUM CARBONATE [Suspect]
     Active Substance: LITHIUM CARBONATE
     Indication: Mania
     Route: 065
  3. PSYLLIUM HUSK [Suspect]
     Active Substance: PSYLLIUM HUSK
     Indication: Decreased appetite
     Route: 065
  4. LITHIUM [Suspect]
     Active Substance: LITHIUM
     Indication: Mania
  5. HERBALS [Suspect]
     Active Substance: HERBALS
     Indication: Decreased appetite
  6. VITAMINS [Concomitant]
     Active Substance: VITAMINS

REACTIONS (3)
  - Abnormal behaviour [Recovering/Resolving]
  - Herbal interaction [Recovering/Resolving]
  - Job change [Recovering/Resolving]
